FAERS Safety Report 24625738 (Version 1)
Quarter: 2024Q4

REPORT INFORMATION
  Report Type: Spontaneous
  Country: US (occurrence: None)
  Receive Date: 20241115
  Receipt Date: 20241115
  Transmission Date: 20250115
  Serious: Yes (Hospitalization, Disabling, Other)
  Sender: Public
  Company Number: None

PATIENT
  Age: 78 Year
  Sex: Female
  Weight: 57.6 kg

DRUGS (8)
  1. EYLEA HD [Suspect]
     Active Substance: AFLIBERCEPT
     Indication: Macular degeneration
     Route: 047
     Dates: start: 20231130, end: 20231130
  2. ELIQUIS [Concomitant]
     Active Substance: APIXABAN
  3. OLMESARTAN [Concomitant]
     Active Substance: OLMESARTAN
  4. CARVEDILOL [Concomitant]
     Active Substance: CARVEDILOL
  5. FLECAINIDE [Concomitant]
     Active Substance: FLECAINIDE
  6. PROLIA [Concomitant]
     Active Substance: DENOSUMAB
  7. LUTEIN [Concomitant]
     Active Substance: LUTEIN
  8. ZEAXANTHIN [Concomitant]
     Active Substance: ZEAXANTHIN

REACTIONS (8)
  - Blindness unilateral [None]
  - Eye infection [None]
  - Retinal detachment [None]
  - Eye pain [None]
  - Altered visual depth perception [None]
  - Impaired driving ability [None]
  - Dialysis [None]
  - Quality of life decreased [None]

NARRATIVE: CASE EVENT DATE: 20231130
